FAERS Safety Report 4359368-7 (Version None)
Quarter: 2004Q2

REPORT INFORMATION
  Report Type: 
  Country: None (occurrence: None)
  Receive Date: 20040518
  Receipt Date: 20040507
  Transmission Date: 20050107
  Serious: Yes (Death)
  Sender: FDA-Public Use
  Company Number: US-JNJFOC-20040501553

PATIENT
  Sex: Female

DRUGS (21)
  1. INFLIXIMAB [Suspect]
     Indication: RHEUMATOID ARTHRITIS
     Route: 042
  2. NORVASC [Concomitant]
     Route: 065
  3. BENECAR [Concomitant]
     Route: 065
  4. ADVAIR DISKUS 100/50 [Concomitant]
     Route: 065
  5. ADVAIR DISKUS 100/50 [Concomitant]
     Route: 065
  6. ATROVENT [Concomitant]
     Route: 065
  7. ALBUTEROL [Concomitant]
     Route: 065
  8. ALLEGRA [Concomitant]
     Route: 065
  9. FOSAMAX [Concomitant]
     Route: 065
  10. PLAQUERIL [Concomitant]
     Route: 065
  11. THEOPHYLINE [Concomitant]
     Route: 065
  12. INDURAL [Concomitant]
     Route: 065
  13. TYLENOL [Concomitant]
     Route: 065
  14. MULTI-VITAMINS [Concomitant]
     Route: 065
  15. MULTI-VITAMINS [Concomitant]
     Route: 065
  16. MULTI-VITAMINS [Concomitant]
     Route: 065
  17. MULTI-VITAMINS [Concomitant]
     Route: 065
  18. MULTI-VITAMINS [Concomitant]
     Route: 065
  19. MULTI-VITAMINS [Concomitant]
     Route: 065
  20. MULTI-VITAMINS [Concomitant]
     Route: 065
  21. MULTI-VITAMINS [Concomitant]
     Route: 065

REACTIONS (1)
  - DEATH [None]
